FAERS Safety Report 25902410 (Version 2)
Quarter: 2025Q4

REPORT INFORMATION
  Report Type: Spontaneous
  Country: US (occurrence: US)
  Receive Date: 20251009
  Receipt Date: 20251105
  Transmission Date: 20260117
  Serious: Yes (Other)
  Sender: Atlantis Consumer Healthcare
  Company Number: US-ATLANTISCH-2025-US-045610

PATIENT
  Age: 80 Year
  Sex: Male
  Weight: 71.67 kg

DRUGS (6)
  1. BETADINE [Suspect]
     Active Substance: POVIDONE-IODINE
     Indication: Infection prophylaxis
     Dosage: APPLIED DURING SURGERY
     Route: 061
     Dates: start: 20240614, end: 20240614
  2. CLONAZEPAM [Concomitant]
     Active Substance: CLONAZEPAM
  3. FINASTERIDE [Concomitant]
     Active Substance: FINASTERIDE
  4. TERAZOSIN [Concomitant]
     Active Substance: TERAZOSIN HYDROCHLORIDE
  5. ATORVASTATIN [Concomitant]
     Active Substance: ATORVASTATIN
  6. DESCOVY [Concomitant]
     Active Substance: EMTRICITABINE\TENOFOVIR ALAFENAMIDE FUMARATE

REACTIONS (5)
  - Chemical burn [Unknown]
  - Dermatitis [Unknown]
  - Skin disorder [Unknown]
  - Pain [Unknown]
  - Rash [Unknown]

NARRATIVE: CASE EVENT DATE: 20240601
